FAERS Safety Report 19556859 (Version 2)
Quarter: 2021Q3

REPORT INFORMATION
  Report Type: Spontaneous
  Country: JP (occurrence: JP)
  Receive Date: 20210715
  Receipt Date: 20210721
  Transmission Date: 20211014
  Serious: Yes (Life-Threatening, Other)
  Sender: FDA-Public Use
  Company Number: JP-FERRINGPH-2021FE04450

PATIENT
  Age: 57 Year
  Sex: Male

DRUGS (9)
  1. MAGNESIUM OXIDE. [Concomitant]
     Active Substance: MAGNESIUM OXIDE
     Route: 065
  2. AMLODIN [Concomitant]
     Active Substance: AMLODIPINE BESYLATE
     Route: 065
  3. BESACOLIN [Concomitant]
     Active Substance: BETHANECHOL CHLORIDE
     Route: 065
  4. METFORMIN HYDROCHLORIDE MT [Concomitant]
     Active Substance: METFORMIN HYDROCHLORIDE
     Route: 065
  5. TENORMIN [Concomitant]
     Active Substance: ATENOLOL
     Route: 065
  6. LYRICA [Concomitant]
     Active Substance: PREGABALIN
     Route: 065
  7. MINIRINMELT [Suspect]
     Active Substance: DESMOPRESSIN ACETATE
     Indication: NOCTURIA
     Dosage: 50 UG
     Route: 065
     Dates: start: 20200608, end: 20210611
  8. FLIVAS [Concomitant]
     Active Substance: NAFTOPIDIL
     Route: 065
  9. FEBURIC [Concomitant]
     Active Substance: FEBUXOSTAT
     Route: 065

REACTIONS (3)
  - Renal impairment [Not Recovered/Not Resolved]
  - Glomerulonephritis rapidly progressive [Not Recovered/Not Resolved]
  - Nephrosclerosis [Not Recovered/Not Resolved]

NARRATIVE: CASE EVENT DATE: 202101
